FAERS Safety Report 23617131 (Version 1)
Quarter: 2024Q1

REPORT INFORMATION
  Report Type: Spontaneous
  Country: US (occurrence: None)
  Receive Date: 20240309
  Receipt Date: 20240309
  Transmission Date: 20240409
  Serious: Yes (Disabling)
  Sender: FDA-Public Use
  Company Number: None

PATIENT
  Age: 53 Year
  Sex: Female
  Weight: 90.45 kg

DRUGS (1)
  1. KLONOPIN [Suspect]
     Active Substance: CLONAZEPAM
     Indication: Generalised anxiety disorder
     Dates: end: 20231215

REACTIONS (41)
  - Product communication issue [None]
  - Drug tolerance increased [None]
  - Neurological decompensation [None]
  - Malaise [None]
  - Drug withdrawal syndrome [None]
  - Economic problem [None]
  - Skin laceration [None]
  - Housebound [None]
  - Quality of life decreased [None]
  - Myalgia [None]
  - Arthralgia [None]
  - Agitation [None]
  - Agoraphobia [None]
  - Anger [None]
  - Panic disorder [None]
  - Temperature regulation disorder [None]
  - Suicidal ideation [None]
  - Brain fog [None]
  - Amnesia [None]
  - Amnesia [None]
  - Pelvic floor dysfunction [None]
  - Vertigo [None]
  - Anhedonia [None]
  - Electric shock sensation [None]
  - Headache [None]
  - Vibratory sense increased [None]
  - Fatigue [None]
  - Influenza like illness [None]
  - Alopecia [None]
  - Limb discomfort [None]
  - Palpitations [None]
  - Photophobia [None]
  - Hyperacusis [None]
  - Intrusive thoughts [None]
  - Tinnitus [None]
  - Gastrointestinal disorder [None]
  - Dyskinesia [None]
  - Visual impairment [None]
  - Toothache [None]
  - Gingival pain [None]
  - Iatrogenic injury [None]

NARRATIVE: CASE EVENT DATE: 20191117
